FAERS Safety Report 7449079-3 (Version None)
Quarter: 2011Q2

REPORT INFORMATION
  Report Type: 
  Country: None (occurrence: None)
  Receive Date: 20110502
  Receipt Date: 20091104
  Transmission Date: 20111010
  Serious: Yes (Death, Hospitalization, Other)
  Sender: FDA-Public Use
  Company Number: US-BAYER-200939309NA

PATIENT
  Age: 49 Year
  Sex: Female
  Weight: 78 kg

DRUGS (27)
  1. LOPRESSOR [Concomitant]
     Dosage: 25 MG, Q6H
     Route: 048
  2. NITROGLYCERIN [Concomitant]
     Dosage: 1 1/2 INCH Q6H
     Route: 061
  3. LASIX [Concomitant]
     Dosage: 40 MG, UNK
  4. MILRINONE [Concomitant]
     Dosage: UNK
     Route: 042
     Dates: start: 20040112
  5. RED BLOOD CELLS [Concomitant]
     Dosage: 4 U, UNK
     Route: 042
     Dates: start: 20040116
  6. CELEBREX [Concomitant]
     Route: 048
  7. ANCEF [Concomitant]
     Dosage: UNK
     Route: 042
  8. HYDROCHLOROTHIAZIDE [Concomitant]
     Route: 048
  9. LOVENOX [Concomitant]
     Dosage: 80 MG, BID
  10. LOTENSIN [Concomitant]
     Dosage: 20 MG, BID
     Route: 048
  11. TRASYLOL [Suspect]
     Indication: MITRAL VALVE REPAIR
  12. PLAVIX [Concomitant]
  13. ALBUMIN NOS [Concomitant]
     Dosage: 50 G, UNK
     Route: 042
     Dates: start: 20040112
  14. FENTANYL [Concomitant]
     Dosage: UNK
     Route: 042
     Dates: start: 20040112
  15. PAPAVERINE [PAPAVERINE] [Concomitant]
     Dosage: 60 MG, UNK
     Route: 042
     Dates: start: 20040112
  16. NORVASC [Concomitant]
     Dosage: UNK
     Route: 048
     Dates: end: 20020101
  17. INSULIN [INSULIN] [Concomitant]
     Dosage: UNK
     Route: 041
     Dates: start: 20040112
  18. VERSED [Concomitant]
     Dosage: UNK
     Route: 042
     Dates: start: 20040112
  19. PENTOTHAL [Concomitant]
     Dosage: UNK
     Route: 042
     Dates: start: 20040112
  20. TRASYLOL [Suspect]
     Indication: CORONARY ARTERY BYPASS
     Dosage: 1ML TEST DOSE, 100CC/HR, THEN 50ML/HR
     Route: 042
     Dates: start: 20040112, end: 20040112
  21. VIOXX [Concomitant]
     Route: 048
  22. NITROGLYCERIN [Concomitant]
     Route: 060
  23. METOPROLOL SUCCINATE [Concomitant]
  24. HEPARIN [Concomitant]
     Dosage: 10,000
     Route: 042
     Dates: start: 20040112
  25. GLUCOTROL XL [Concomitant]
     Dosage: 5 MG, QD
     Route: 048
     Dates: end: 20020101
  26. ACETYLSALICYLIC ACID SRT [Concomitant]
     Dosage: 325 MG, QD
     Route: 048
  27. MORPHINE [Concomitant]
     Dosage: 5 MG, UNK
     Route: 042

REACTIONS (6)
  - ANXIETY [None]
  - RENAL FAILURE [None]
  - INJURY [None]
  - MYOCARDIAL INFARCTION [None]
  - DEATH [None]
  - PAIN [None]
